FAERS Safety Report 15768027 (Version 1)
Quarter: 2018Q4

REPORT INFORMATION
  Report Type: Spontaneous
  Country: GB (occurrence: GB)
  Receive Date: 20181227
  Receipt Date: 20181227
  Transmission Date: 20190205
  Serious: Yes (Death, Other)
  Sender: FDA-Public Use
  Company Number: GB-PFIZER INC-2018529304

PATIENT
  Age: 31 Year
  Sex: Male

DRUGS (2)
  1. PREGABALIN. [Suspect]
     Active Substance: PREGABALIN
     Dosage: UNK
  2. CODEINE [Interacting]
     Active Substance: CODEINE

REACTIONS (6)
  - Intentional product misuse [Unknown]
  - Sedation [Unknown]
  - Overdose [Fatal]
  - Drug dependence [Unknown]
  - Drug interaction [Fatal]
  - Pain [Unknown]
